FAERS Safety Report 18284967 (Version 3)
Quarter: 2020Q3

REPORT INFORMATION
  Report Type: Spontaneous
  Country: US (occurrence: US)
  Receive Date: 20200918
  Receipt Date: 20200929
  Transmission Date: 20201103
  Serious: Yes (Other)
  Sender: FDA-Public Use
  Company Number: US-PFIZER INC-2020332362

PATIENT
  Age: 78 Year
  Sex: Female
  Weight: 89.36 kg

DRUGS (3)
  1. SUTENT [Suspect]
     Active Substance: SUNITINIB MALATE
     Dosage: 50 MG, CYCLIC [50MG CAPSULE BY MOUTH DAILY, 4 DAYS ON AND THEN 2 WEEKS OFF. REPEAT DOSING CYCLE]
     Route: 048
     Dates: start: 202009, end: 202009
  2. INSULIN 2 [Concomitant]
     Dosage: UNK
     Dates: end: 20200904
  3. SUTENT [Suspect]
     Active Substance: SUNITINIB MALATE
     Indication: METASTATIC RENAL CELL CARCINOMA
     Dosage: 50 MG, CYCLIC, (1 TABLET DAILY FOR 4 WEEKS AND 2 WEEKS OFF)
     Route: 048
     Dates: start: 20200826, end: 20200908

REACTIONS (4)
  - Product label confusion [Unknown]
  - Blood glucose decreased [Recovering/Resolving]
  - Blood pressure increased [Recovering/Resolving]
  - Circumstance or information capable of leading to medication error [Unknown]

NARRATIVE: CASE EVENT DATE: 2020
